FAERS Safety Report 6653320-4 (Version None)
Quarter: 2010Q1

REPORT INFORMATION
  Report Type: 
  Country: None (occurrence: None)
  Receive Date: 20100326
  Receipt Date: 20100317
  Transmission Date: 20100710
  Serious: No
  Sender: FDA-Public Use
  Company Number: JP-ROCHE-689930

PATIENT
  Age: 67 Year
  Sex: Female

DRUGS (7)
  1. HERCEPTIN [Suspect]
     Indication: BREAST CANCER METASTATIC
     Route: 041
     Dates: start: 20091001
  2. DOCETAXEL [Suspect]
     Indication: BREAST CANCER METASTATIC
     Dosage: DOCETAXEL HYDRATE(DOCETAXEL HYDRATE)
     Route: 041
  3. FARMORUBICIN [Concomitant]
     Dosage: REPORTED FARMORUBICIN(EPIRUBICIN HYDROCHLORIDE)
  4. CYCLOPHOSPHAMIDE [Concomitant]
  5. KYTRIL [Concomitant]
  6. DEXMETHSONE [Concomitant]
  7. ZANTAC [Concomitant]
     Dosage: REPORTED ZANTAC(RANITIDINE HYDROCHLORIDE)

REACTIONS (2)
  - DEAFNESS [None]
  - OTITIS MEDIA [None]
